FAERS Safety Report 23918053 (Version 2)
Quarter: 2024Q2

REPORT INFORMATION
  Report Type: Spontaneous
  Country: US (occurrence: US)
  Receive Date: 20240530
  Receipt Date: 20240625
  Transmission Date: 20240715
  Serious: No
  Sender: FDA-Public Use
  Company Number: US-SANOFI-02063888

PATIENT
  Age: 86 Year
  Sex: Male

DRUGS (1)
  1. TOUJEO [Suspect]
     Active Substance: INSULIN GLARGINE
     Indication: Type 2 diabetes mellitus
     Dosage: 16 UNITS QD AND DRUG TREATMENT DURATION:6 TO 8 YEARS

REACTIONS (2)
  - Blood glucose fluctuation [Unknown]
  - Visual impairment [Unknown]
